FAERS Safety Report 9969693 (Version 1)
Quarter: 2014Q1

REPORT INFORMATION
  Report Type: Spontaneous
  Country: US (occurrence: None)
  Receive Date: 20140304
  Receipt Date: 20140304
  Transmission Date: 20141002
  Serious: No
  Sender: FDA-Public Use
  Company Number: None

PATIENT
  Age: 71 Year
  Sex: Male
  Weight: 86.18 kg

DRUGS (1)
  1. EQUATE GENTLE LUBRICANT EYE DROP .3% [Suspect]
     Indication: DRY EYE
     Dosage: 1 OR 2 DROPS AS NEEDED AS NEEDED
     Dates: start: 20130902, end: 20130903

REACTIONS (3)
  - Eye disorder [None]
  - Product odour abnormal [None]
  - Accidental exposure to product [None]
